FAERS Safety Report 8065846-X (Version None)
Quarter: 2012Q1

REPORT INFORMATION
  Report Type: 
  Country: None (occurrence: None)
  Receive Date: 20120124
  Receipt Date: 20120116
  Transmission Date: 20120608
  Serious: Yes (Hospitalization)
  Sender: FDA-Public Use
  Company Number: CA-BRISTOL-MYERS SQUIBB COMPANY-15155781

PATIENT
  Age: 51 Year
  Sex: Female

DRUGS (5)
  1. ORENCIA [Suspect]
     Indication: RHEUMATOID ARTHRITIS
     Dosage: TOTAL INFUSION RECEIVED 36; THERAPY DATES:19-MAY-2010,LAST INFUSION ON 13AUG2010,22DEC11
     Route: 042
     Dates: start: 20090202
  2. CELEBREX [Concomitant]
  3. HYDROCHLOROTHIAZIDE [Concomitant]
  4. ARAVA [Suspect]
  5. TYLENOL W/ CODEINE NO. 3 [Concomitant]

REACTIONS (6)
  - OROPHARYNGEAL BLISTERING [None]
  - FULL BLOOD COUNT DECREASED [None]
  - STOMATITIS [None]
  - VIRAL INFECTION [None]
  - PNEUMONIA [None]
  - NASOPHARYNGITIS [None]
